FAERS Safety Report 4578035-8 (Version None)
Quarter: 2005Q1

REPORT INFORMATION
  Report Type: 
  Country: None (occurrence: None)
  Receive Date: 20050209
  Receipt Date: 20030508
  Transmission Date: 20050727
  Serious: Yes (Death, Hospitalization)
  Sender: FDA-Public Use
  Company Number: 05-018

PATIENT
  Age: 77 Year
  Sex: Male

DRUGS (4)
  1. CAPOTEN [Suspect]
     Indication: HYPERTENSION
     Dosage: 75 MG/DAY ORAL
     Route: 048
     Dates: start: 20021104, end: 20021201
  2. CAPOTEN [Suspect]
     Indication: MYOCARDIAL ISCHAEMIA
     Dosage: 75 MG/DAY ORAL
     Route: 048
     Dates: start: 20021104, end: 20021201
  3. NOLOTIL [Concomitant]
  4. METAMIZOL MAGNESIUM [Concomitant]

REACTIONS (6)
  - AGRANULOCYTOSIS [None]
  - DEPRESSED LEVEL OF CONSCIOUSNESS [None]
  - ENTERITIS [None]
  - NEUTROPENIA [None]
  - PNEUMONIA [None]
  - PSEUDOMONAL SEPSIS [None]
